FAERS Safety Report 16696933 (Version 2)
Quarter: 2019Q3

REPORT INFORMATION
  Report Type: Spontaneous
  Country: US (occurrence: US)
  Receive Date: 20190813
  Receipt Date: 20190903
  Transmission Date: 20191004
  Serious: No
  Sender: FDA-Public Use
  Company Number: US-PFIZER INC-2019071160

PATIENT
  Age: 63 Year
  Sex: Female
  Weight: 113.4 kg

DRUGS (3)
  1. CHANTIX [Suspect]
     Active Substance: VARENICLINE TARTRATE
     Indication: SMOKING CESSATION THERAPY
     Dosage: 0.5 MG, 2X/DAY (1/2 TABLET TWICE A DAY FOR ONE WEEK)
  2. CHANTIX [Suspect]
     Active Substance: VARENICLINE TARTRATE
     Dosage: 1 MG, 2X/DAY,(1MG; ONE IN THE MORNING AND ONE AT NIGHT, BY MOUTH)
     Route: 048
     Dates: start: 201812
  3. CHANTIX [Suspect]
     Active Substance: VARENICLINE TARTRATE
     Indication: NICOTINE DEPENDENCE
     Dosage: 0.5 MG, DAILY (1/2 TABLET DAILY FOR THREE DAYS)

REACTIONS (4)
  - Nervousness [Unknown]
  - Panic attack [Unknown]
  - Intentional product misuse [Unknown]
  - Restlessness [Unknown]
